FAERS Safety Report 21140002 (Version 2)
Quarter: 2023Q2

REPORT INFORMATION
  Report Type: Report from Study
  Country: KR (occurrence: KR)
  Receive Date: 20220728
  Receipt Date: 20230630
  Transmission Date: 20230722
  Serious: Yes (Death, Other)
  Sender: FDA-Public Use
  Company Number: KR-ASTELLAS-2022US026476

PATIENT
  Age: 59 Year
  Sex: Female

DRUGS (2)
  1. GILTERITINIB [Suspect]
     Active Substance: GILTERITINIB
     Indication: Acute myeloid leukaemia
     Dosage: UNK UNK, UNKNOWN FREQ.
     Route: 065
  2. GILTERITINIB [Suspect]
     Active Substance: GILTERITINIB
     Indication: FLT3 gene mutation

REACTIONS (8)
  - Sepsis [Fatal]
  - Condition aggravated [Fatal]
  - Neutrophil count abnormal [Unknown]
  - Aspergillus infection [Fatal]
  - Septic shock [Fatal]
  - Fungal infection [Fatal]
  - Febrile neutropenia [Unknown]
  - Blast cell count increased [Unknown]
